FAERS Safety Report 25964816 (Version 1)
Quarter: 2025Q4

REPORT INFORMATION
  Report Type: Spontaneous
  Country: US (occurrence: US)
  Receive Date: 20251027
  Receipt Date: 20251027
  Transmission Date: 20260117
  Serious: Yes (Hospitalization)
  Sender: PFIZER
  Company Number: US-PFIZER INC-202500209037

PATIENT
  Age: 86 Year
  Sex: Female

DRUGS (1)
  1. ELREXFIO [Suspect]
     Active Substance: ELRANATAMAB-BCMM
     Dosage: UNK

REACTIONS (7)
  - Fall [Unknown]
  - Upper limb fracture [Unknown]
  - Hand fracture [Unknown]
  - Craniofacial fracture [Unknown]
  - Patella fracture [Unknown]
  - Fatigue [Unknown]
  - Asthenia [Unknown]
